FAERS Safety Report 9838373 (Version 1)
Quarter: 2014Q1

REPORT INFORMATION
  Report Type: Spontaneous
  Country: JP (occurrence: JP)
  Receive Date: 20140123
  Receipt Date: 20140123
  Transmission Date: 20141002
  Serious: Yes (Other)
  Sender: FDA-Public Use
  Company Number: JP-GLAXOSMITHKLINE-B0962838A

PATIENT
  Sex: Male

DRUGS (1)
  1. ALLERMIST [Suspect]
     Indication: NASAL CONGESTION
     Route: 045

REACTIONS (1)
  - Oropharyngeal blistering [Unknown]
